FAERS Safety Report 22661869 (Version 1)
Quarter: 2023Q2

REPORT INFORMATION
  Report Type: Report from Study
  Country: DK (occurrence: DK)
  Receive Date: 20230630
  Receipt Date: 20230630
  Transmission Date: 20230721
  Serious: Yes (Other)
  Sender: FDA-Public Use
  Company Number: DK-TAKEDA-DK201734399

PATIENT
  Age: 12 Year
  Sex: Male

DRUGS (27)
  1. IDURSULFASE [Suspect]
     Active Substance: IDURSULFASE
     Indication: Mucopolysaccharidosis II
     Dosage: 0.5 MG/KG, 1X/WEEK
     Route: 042
     Dates: start: 20080613
  2. IDURSULFASE [Suspect]
     Active Substance: IDURSULFASE
     Dosage: 0.52 MILLIGRAM/KILOGRAM
     Route: 042
     Dates: start: 20130204
  3. LIORESAL [Concomitant]
     Active Substance: BACLOFEN
     Indication: Muscle tightness
     Route: 065
  4. RIVOTRIL [Concomitant]
     Active Substance: CLONAZEPAM
     Indication: Psychomotor hyperactivity
     Dosage: UNK
     Route: 048
     Dates: start: 20100824
  5. CLEMASTINE FUMARATE [Concomitant]
     Active Substance: CLEMASTINE FUMARATE
     Indication: Infusion related reaction
     Dosage: UNK
     Route: 048
     Dates: start: 20080801
  6. SOLU-MEDROL [Concomitant]
     Active Substance: METHYLPREDNISOLONE SODIUM SUCCINATE
     Indication: Infusion related reaction
     Dosage: UNK
     Route: 048
     Dates: start: 20080801
  7. GENISTEIN [Concomitant]
     Active Substance: GENISTEIN
     Indication: Mucopolysaccharidosis II
     Dosage: UNK
     Route: 048
     Dates: start: 20090529
  8. RITALIN [Concomitant]
     Active Substance: METHYLPHENIDATE HYDROCHLORIDE
     Indication: Psychomotor hyperactivity
     Dosage: UNK
     Route: 048
     Dates: start: 20091111, end: 20091202
  9. MODAFINIL [Concomitant]
     Active Substance: MODAFINIL
     Indication: Psychomotor hyperactivity
     Dosage: UNK
     Route: 048
     Dates: start: 20091203, end: 20091207
  10. PENICILLIN [Concomitant]
     Active Substance: PENICILLIN
     Indication: Pyrexia
     Dosage: UNK
     Route: 048
     Dates: start: 20121012, end: 20121019
  11. DIAZEPAM [Concomitant]
     Active Substance: DIAZEPAM
     Indication: Epilepsy
     Dosage: UNK
     Route: 054
     Dates: start: 20130412
  12. CLOBAZAM [Concomitant]
     Active Substance: CLOBAZAM
     Indication: Epilepsy
     Dosage: UNK
     Route: 048
     Dates: start: 20130412, end: 20130523
  13. LAMICTAL [Concomitant]
     Active Substance: LAMOTRIGINE
     Indication: Epilepsy
     Dosage: UNK
     Route: 048
     Dates: start: 20130412
  14. MELATONIN [Concomitant]
     Active Substance: MELATONIN
     Indication: Sleep disorder
     Dosage: UNK
     Route: 048
     Dates: start: 20130603
  15. MELATONIN [Concomitant]
     Active Substance: MELATONIN
     Indication: Insomnia
     Dosage: UNK
     Route: 048
     Dates: start: 2017, end: 20180306
  16. MELATONIN [Concomitant]
     Active Substance: MELATONIN
     Indication: Sleep disorder
     Dosage: UNK
     Route: 048
     Dates: start: 20130902
  17. SCOPOLAMINE [Concomitant]
     Active Substance: SCOPOLAMINE
     Indication: Salivary hypersecretion
     Dosage: UNK
     Route: 062
     Dates: start: 20131023, end: 20150109
  18. LEVOMEPROMAZINE [Concomitant]
     Active Substance: LEVOMEPROMAZINE
     Indication: Antipsychotic therapy
     Dosage: UNK
     Route: 048
     Dates: start: 20141126
  19. KEPPRA [Concomitant]
     Active Substance: LEVETIRACETAM
     Indication: Toxicity to various agents
     Dosage: UNK
     Route: 048
     Dates: start: 20150109
  20. ATROPINE [Concomitant]
     Active Substance: ATROPINE
     Indication: Salivary hypersecretion
     Dosage: UNK
     Route: 060
     Dates: start: 20150109
  21. RISPERDAL [Concomitant]
     Active Substance: RISPERIDONE
     Indication: Psychotic disorder
     Dosage: UNK
     Route: 048
     Dates: start: 20150608, end: 20150619
  22. MAGNESIUM SULFATE [Concomitant]
     Active Substance: MAGNESIUM SULFATE
     Indication: Gonadal dysgenesis
     Dosage: UNK
     Route: 048
     Dates: start: 20150928
  23. MOVICOL [Concomitant]
     Active Substance: POLYETHYLENE GLYCOL 3350\POTASSIUM CHLORIDE\SODIUM BICARBONATE\SODIUM CHLORIDE
     Indication: Constipation
     Dosage: UNK
     Route: 048
     Dates: start: 20160115
  24. LIORESAL [Concomitant]
     Active Substance: BACLOFEN
     Indication: Hypertonia
     Dosage: UNK
     Route: 048
     Dates: start: 20171124
  25. ACRIVASTINA [Concomitant]
     Indication: Insomnia
     Dosage: UNK
     Route: 048
     Dates: start: 20180131
  26. MIDAZOLAM [Concomitant]
     Active Substance: MIDAZOLAM
     Indication: Sedative therapy
     Dosage: UNK
     Route: 048
     Dates: start: 20180917
  27. ACETAZOLAMIDE [Concomitant]
     Active Substance: ACETAZOLAMIDE
     Indication: Dystonia
     Dosage: UNK
     Route: 048
     Dates: start: 20190306

REACTIONS (1)
  - Femur fracture [Recovered/Resolved]

NARRATIVE: CASE EVENT DATE: 20170804
